FAERS Safety Report 6730828-4 (Version None)
Quarter: 2010Q2

REPORT INFORMATION
  Report Type: 
  Country: None (occurrence: None)
  Receive Date: 20100514
  Receipt Date: 20100428
  Transmission Date: 20101027
  Serious: Yes (Hospitalization, Other)
  Sender: FDA-Public Use
  Company Number: 2009BI041909

PATIENT
  Age: 64 Year
  Sex: Male

DRUGS (14)
  1. ZEVALIN [Suspect]
     Indication: MANTLE CELL LYMPHOMA
     Dosage: 833 MBQ; 1X; IV
     Route: 042
     Dates: start: 20091209, end: 20091216
  2. RITUXIMAB [Concomitant]
  3. GASTER D [Concomitant]
  4. METHYLCOBAL [Concomitant]
  5. ENTERONON R [Concomitant]
  6. NEUFAN [Concomitant]
  7. AMLODIN OD [Concomitant]
  8. GOSHAJINKIGAN [Concomitant]
  9. ITRIZOLE [Concomitant]
  10. MAGLAX [Concomitant]
  11. COTRIM [Concomitant]
  12. ROHYPNOL [Concomitant]
  13. IBRUPROFEN [Concomitant]
  14. RITUXIMAB [Concomitant]

REACTIONS (6)
  - MELAENA [None]
  - NEUTROPHIL COUNT DECREASED [None]
  - NYSTAGMUS [None]
  - PSEUDOMEMBRANOUS COLITIS [None]
  - VERTIGO POSITIONAL [None]
  - WHITE BLOOD CELL COUNT DECREASED [None]
